FAERS Safety Report 16390718 (Version 5)
Quarter: 2023Q1

REPORT INFORMATION
  Report Type: Spontaneous
  Country: GR (occurrence: GR)
  Receive Date: 20190604
  Receipt Date: 20230214
  Transmission Date: 20230418
  Serious: Yes (Hospitalization, Other)
  Sender: FDA-Public Use
  Company Number: GR-BOEHRINGERINGELHEIM-2019-BI-024355

PATIENT
  Age: 65 Year
  Sex: Male

DRUGS (2)
  1. DABIGATRAN [Suspect]
     Active Substance: DABIGATRAN
     Indication: Cerebrovascular accident prophylaxis
     Route: 048
  2. DABIGATRAN [Suspect]
     Active Substance: DABIGATRAN
     Indication: Atrial fibrillation

REACTIONS (8)
  - Haemorrhagic cerebral infarction [Unknown]
  - Hemiplegia [Unknown]
  - Aphasia [Unknown]
  - Drug ineffective [Unknown]
  - General physical health deterioration [Unknown]
  - Aphasia [Unknown]
  - Hemiplegia [Unknown]
  - Somnolence [Unknown]
